FAERS Safety Report 20843777 (Version 1)
Quarter: 2022Q2

REPORT INFORMATION
  Report Type: Spontaneous
  Country: GB (occurrence: GB)
  Receive Date: 20220518
  Receipt Date: 20220518
  Transmission Date: 20220721
  Serious: Yes (Other)
  Sender: FDA-Public Use
  Company Number: GB-MHRA-MED-202205061053377480-2FMAL

PATIENT
  Age: 48 Year
  Weight: 47 kg

DRUGS (2)
  1. DOXYCYCLINE [Suspect]
     Active Substance: DOXYCYCLINE
     Indication: Sinusitis
     Dosage: 100 MG, 2X/DAY
     Dates: start: 20220430, end: 20220506
  2. SUMATRIPTAN [Concomitant]
     Active Substance: SUMATRIPTAN
     Indication: Migraine
     Dosage: UNK
     Dates: start: 20220306

REACTIONS (7)
  - Chest discomfort [Unknown]
  - Migraine [Unknown]
  - Sunburn [Unknown]
  - Dizziness [Unknown]
  - Dyspnoea [Unknown]
  - Skin sensitisation [Unknown]
  - Nausea [Unknown]

NARRATIVE: CASE EVENT DATE: 20220504
